FAERS Safety Report 9559490 (Version 2)
Quarter: 2013Q4

REPORT INFORMATION
  Report Type: Spontaneous
  Country: US (occurrence: None)
  Receive Date: 20130617
  Receipt Date: 20131114
  Transmission Date: 20140711
  Serious: Yes (Hospitalization, Other)
  Sender: FDA-Public Use
  Company Number: EUS-2013-00265

PATIENT
  Age: 5 Year
  Sex: Female

DRUGS (1)
  1. ERWINAZE (ASPARAGINASE) [Suspect]
     Indication: ACUTE LYMPHOCYTIC LEUKAEMIA
     Dates: end: 201301

REACTIONS (3)
  - Urticaria [None]
  - Urticaria [None]
  - Febrile neutropenia [None]
